FAERS Safety Report 9982136 (Version 1)
Quarter: 2014Q1

REPORT INFORMATION
  Report Type: Report from Study
  Country: US (occurrence: US)
  Receive Date: 20140307
  Receipt Date: 20140307
  Transmission Date: 20141002
  Serious: No
  Sender: FDA-Public Use
  Company Number: US-ABBVIE-13P-163-1177425-00

PATIENT
  Age: 19 Year
  Sex: Female

DRUGS (5)
  1. HUMIRA [Suspect]
     Indication: CROHN^S DISEASE
     Dates: start: 20131002
  2. FLUOXETINE [Concomitant]
     Indication: DEPRESSION
  3. FLUOXETINE [Concomitant]
     Indication: AFFECTIVE DISORDER
  4. EPITOL [Concomitant]
     Indication: DEPRESSION
  5. EPITOL [Concomitant]
     Indication: AFFECTIVE DISORDER

REACTIONS (1)
  - Injection site bruising [Recovering/Resolving]
